FAERS Safety Report 5567856-0 (Version None)
Quarter: 2007Q4

REPORT INFORMATION
  Report Type: 
  Country: None (occurrence: None)
  Receive Date: 20071217
  Receipt Date: 20071130
  Transmission Date: 20080405
  Serious: Yes (Disabling)
  Sender: FDA-Public Use
  Company Number: 2007BI023668

PATIENT
  Age: 53 Year
  Sex: Male

DRUGS (1)
  1. AVONEX [Suspect]
     Indication: MULTIPLE SCLEROSIS
     Dosage: 30 UG; QW; IM
     Route: 030
     Dates: start: 20061108

REACTIONS (3)
  - CEREBROVASCULAR ACCIDENT [None]
  - OPTIC ISCHAEMIC NEUROPATHY [None]
  - RETINAL VASCULAR THROMBOSIS [None]
